FAERS Safety Report 5033745-3 (Version None)
Quarter: 2006Q2

REPORT INFORMATION
  Report Type: 
  Country: None (occurrence: None)
  Receive Date: 20060623
  Receipt Date: 20060615
  Transmission Date: 20061013
  Serious: Yes (Disabling)
  Sender: FDA-Public Use
  Company Number: 2006AP02795

PATIENT
  Age: 62 Year
  Sex: Male

DRUGS (9)
  1. MARCAIN INJECTION [Suspect]
     Indication: LOCAL ANAESTHESIA
     Route: 053
  2. XYLOCAINE [Suspect]
     Indication: LOCAL ANAESTHESIA
     Route: 053
  3. PROPOFOL [Concomitant]
     Indication: INDUCTION OF ANAESTHESIA
     Route: 042
  4. PROPOFOL [Concomitant]
     Indication: MAINTENANCE OF ANAESTHESIA
     Route: 042
  5. PROPOFOL [Concomitant]
     Route: 042
  6. PROPOFOL [Concomitant]
     Route: 042
  7. MIDAZOLAM HCL [Concomitant]
  8. FENTANYL [Concomitant]
  9. NITROUS OXIDE W/ OXYGEN [Concomitant]
     Indication: MAINTENANCE OF ANAESTHESIA

REACTIONS (4)
  - HYPOAESTHESIA [None]
  - NERVE INJURY [None]
  - PARALYSIS [None]
  - SPINAL CORD DISORDER [None]
